FAERS Safety Report 25131633 (Version 1)
Quarter: 2025Q1

REPORT INFORMATION
  Report Type: Spontaneous
  Country: BE (occurrence: BE)
  Receive Date: 20250327
  Receipt Date: 20250327
  Transmission Date: 20250408
  Serious: Yes (Hospitalization, Other)
  Sender: TEVA
  Company Number: None

PATIENT
  Age: 84 Year
  Sex: Male

DRUGS (39)
  1. BISOPROLOL [Suspect]
     Active Substance: BISOPROLOL
     Indication: Hypertension
     Dosage: 5 MG, 1X/DAY
     Route: 048
     Dates: start: 2015, end: 20230227
  2. BISOPROLOL [Suspect]
     Active Substance: BISOPROLOL
     Indication: Hypertension
     Dosage: 5 MG, 1X/DAY
     Route: 048
     Dates: start: 20230303, end: 20230310
  3. MAGNESIUM [Concomitant]
     Active Substance: MAGNESIUM
     Indication: Magnesium deficiency
     Dosage: 3 G, 1X/DAY
     Route: 042
     Dates: start: 20230302, end: 20230303
  4. CEFAZOLIN SODIUM [Concomitant]
     Active Substance: CEFAZOLIN SODIUM
     Indication: Sedative therapy
     Dosage: DOSAGE: 2 GRAM FOR SEDATION DURING PACEMAKER IMPLANTATION
     Route: 042
     Dates: start: 20230301, end: 20230301
  5. EDOXABAN TOSYLATE [Concomitant]
     Active Substance: EDOXABAN TOSYLATE
     Indication: Atrial fibrillation
     Dosage: 30 MG, 1X/DAY FOR AN UNREPORTED
     Route: 048
     Dates: start: 20230306, end: 20230310
  6. SIMVASTATIN [Concomitant]
     Active Substance: SIMVASTATIN
     Indication: Hypercholesterolaemia
     Dosage: 20 MG, 1X/DAY
     Route: 048
     Dates: start: 2017
  7. ACORAMIDIS [Concomitant]
     Active Substance: ACORAMIDIS
     Indication: Product used for unknown indication
     Route: 065
  8. PROPOFOL [Concomitant]
     Active Substance: PROPOFOL
     Indication: Sedative therapy
     Dosage: 40 MG, ONCE
     Route: 042
     Dates: start: 20230309, end: 20230309
  9. ENTRESTO [Concomitant]
     Active Substance: SACUBITRIL\VALSARTAN
     Indication: Cardiac failure
     Dosage: [SACUBITRIL 24MG]/[VALSARTAN 26MG], 0.5 CO
     Route: 048
     Dates: start: 20230309, end: 20230310
  10. FENTANYL [Concomitant]
     Active Substance: FENTANYL
     Indication: Sedative therapy
     Dosage: 0.05 MG, ONCE
     Route: 042
     Dates: start: 20230301, end: 20230301
  11. PROSHIELD PLUS [Concomitant]
     Indication: Prophylaxis
     Dosage: 1 APPLICATION, 2X/DAY
     Route: 061
     Dates: start: 20230309
  12. PANTOMED [Concomitant]
     Indication: Prophylaxis
     Dosage: 40 MG, 1X/DAY
     Route: 048
     Dates: start: 2009
  13. COMIRNATY [Concomitant]
     Indication: Product used for unknown indication
     Route: 058
     Dates: start: 20210505, end: 20210505
  14. COMIRNATY [Concomitant]
     Indication: Product used for unknown indication
     Route: 058
     Dates: start: 20210331, end: 20210331
  15. DAPAGLIFLOZIN [Suspect]
     Active Substance: DAPAGLIFLOZIN
     Indication: Cardiac failure
     Dosage: 10 MG, 1X/DAY
     Route: 048
     Dates: start: 20220330, end: 20230310
  16. DAPAGLIFLOZIN [Suspect]
     Active Substance: DAPAGLIFLOZIN
     Indication: Cardiac failure
     Route: 065
     Dates: end: 20240702
  17. SPIRONOLACTONE [Suspect]
     Active Substance: SPIRONOLACTONE
     Indication: Left ventricular hypertrophy
     Dosage: 25 MG, 1X/DAY
     Route: 048
     Dates: start: 201712, end: 20230310
  18. ACETYLCYSTEINE [Concomitant]
     Active Substance: ACETYLCYSTEINE
     Indication: Cough
     Dosage: 600 MG, 1X/DAY
     Route: 048
     Dates: start: 20191125
  19. BUMETANIDE [Suspect]
     Active Substance: BUMETANIDE
     Indication: Cardiac failure
     Dosage: 1 MG, 1X/DAY
     Route: 048
     Dates: start: 20220401, end: 20220516
  20. BUMETANIDE [Suspect]
     Active Substance: BUMETANIDE
     Indication: Cardiac failure
     Dosage: 0.5 MG, 1X/DAY
     Route: 048
     Dates: start: 20220517, end: 20230310
  21. BUMETANIDE [Suspect]
     Active Substance: BUMETANIDE
     Indication: Cardiac failure
     Dosage: 2 MG, ONCE
     Route: 042
     Dates: start: 20230308, end: 20230308
  22. BUMETANIDE [Suspect]
     Active Substance: BUMETANIDE
     Indication: Cardiac failure
     Route: 065
     Dates: end: 20240701
  23. ENOXAPARIN SODIUM [Concomitant]
     Active Substance: ENOXAPARIN SODIUM
     Indication: Thrombosis
     Dosage: 40 MG, 1X/DAY
     Route: 058
  24. EDOXABAN TOSYLATE [Concomitant]
     Active Substance: EDOXABAN TOSYLATE
     Indication: Atrial fibrillation
     Route: 065
     Dates: end: 20240702
  25. FOLIC ACID [Concomitant]
     Active Substance: FOLIC ACID
     Indication: Folate deficiency
     Dosage: 4 MG, 1X/DAY FOR AN UNREPORTED INDICATION
     Route: 048
     Dates: start: 20230302
  26. ACORAMIDIS [Suspect]
     Active Substance: ACORAMIDIS
     Indication: Product used for unknown indication
     Route: 065
     Dates: start: 20220816
  27. ASPIRIN [Concomitant]
     Active Substance: ASPIRIN
     Indication: Thrombosis prophylaxis
     Dosage: 80 MG, 1X/DAY
     Route: 048
     Dates: start: 2015, end: 20230305
  28. ALIZAPRIDE HYDROCHLORIDE [Concomitant]
     Active Substance: ALIZAPRIDE HYDROCHLORIDE
     Indication: Nausea
     Dosage: 50 MG, ONCE
     Route: 042
     Dates: start: 20230302, end: 20230302
  29. ISOPROTERENOL HYDROCHLORIDE [Concomitant]
     Active Substance: ISOPROTERENOL HYDROCHLORIDE
     Indication: Bradycardia
     Route: 042
     Dates: start: 20230227, end: 20230228
  30. MOMETASONE [Concomitant]
     Active Substance: MOMETASONE
     Indication: Rhinitis prophylaxis
     Route: 045
     Dates: start: 20220214
  31. CORDARONE [Concomitant]
     Active Substance: AMIODARONE HYDROCHLORIDE
     Indication: Atrial fibrillation
     Dosage: 200 MG, 1X/DAY
     Route: 048
     Dates: start: 20230309
  32. CORDARONE [Concomitant]
     Active Substance: AMIODARONE HYDROCHLORIDE
     Indication: Atrial fibrillation
     Dosage: 300 MG, 1X/DAY
     Route: 042
     Dates: start: 20230309, end: 20230309
  33. CORDARONE [Concomitant]
     Active Substance: AMIODARONE HYDROCHLORIDE
     Indication: Atrial fibrillation
     Dosage: 200 MG, 1X/DAY
     Route: 048
  34. CORDARONE [Concomitant]
     Active Substance: AMIODARONE HYDROCHLORIDE
     Indication: Atrial fibrillation
     Route: 042
     Dates: start: 20230309
  35. TAMSULOSIN [Concomitant]
     Active Substance: TAMSULOSIN
     Indication: Benign prostatic hyperplasia
     Dosage: 0.4 MG, 1X/DAY
     Route: 048
     Dates: start: 2009, end: 20240701
  36. IMODIUM [Concomitant]
     Active Substance: LOPERAMIDE HYDROCHLORIDE
     Indication: Diarrhoea
     Dosage: 2 MG, 1X/DAY
     Route: 048
     Dates: start: 20230109, end: 20230114
  37. IMODIUM [Concomitant]
     Active Substance: LOPERAMIDE HYDROCHLORIDE
     Indication: Diarrhoea
     Route: 048
     Dates: start: 20230115
  38. DIAMOX SEQUELS [Concomitant]
     Active Substance: ACETAZOLAMIDE
     Indication: Cardiac failure
     Dosage: 500 MG, ONCE
     Route: 042
     Dates: start: 20230308, end: 20230308
  39. TRAMADOL HYDROCHLORIDE [Concomitant]
     Active Substance: TRAMADOL HYDROCHLORIDE
     Indication: Pain
     Dosage: FOR PAIN AFTER PACEMAKER IMPLANTATION
     Route: 042
     Dates: start: 20230302, end: 20230302

REACTIONS (3)
  - Atrial fibrillation [Recovered/Resolved]
  - Acute kidney injury [Recovered/Resolved]
  - Atrioventricular block [Recovered/Resolved]

NARRATIVE: CASE EVENT DATE: 20230306
